FAERS Safety Report 5930617-4 (Version None)
Quarter: 2008Q4

REPORT INFORMATION
  Report Type: 
  Country: None (occurrence: None)
  Receive Date: 20081027
  Receipt Date: 20081017
  Transmission Date: 20090506
  Serious: Yes (Other)
  Sender: FDA-Public Use
  Company Number: SE-JNJFOC-20081004359

PATIENT
  Age: 19 Year
  Sex: Female

DRUGS (1)
  1. ABERELA [Suspect]
     Indication: SKIN DISORDER
     Route: 062

REACTIONS (4)
  - ACCIDENTAL EXPOSURE [None]
  - APPLICATION SITE EXFOLIATION [None]
  - EYE IRRITATION [None]
  - OCULAR HYPERAEMIA [None]
